FAERS Safety Report 8009027 (Version 4)
Quarter: 2013Q2

REPORT INFORMATION
  Report Type: Report from Study
  Country: US (occurrence: US)
  Receive Date: 20110624
  Receipt Date: 20130604
  Transmission Date: 20140414
  Serious: Yes (Other)
  Sender: FDA-Public Use
  Company Number: US-ABBOTT-11P-163-0733860-00

PATIENT
  Sex: Male
  Weight: 81.72 kg

DRUGS (9)
  1. HUMIRA [Suspect]
     Indication: RHEUMATOID ARTHRITIS
     Dates: start: 2010, end: 201101
  2. HUMIRA [Suspect]
     Dates: start: 201212, end: 201303
  3. HUMIRA [Suspect]
     Dates: start: 20130430
  4. METHOTREXATE [Concomitant]
     Indication: RHEUMATOID ARTHRITIS
  5. PREDNISONE [Concomitant]
     Indication: RHEUMATOID ARTHRITIS
  6. OMEPROZOLE [Concomitant]
     Indication: ABDOMINAL DISCOMFORT
  7. TRAMADOL [Concomitant]
     Indication: PAIN
  8. FOLIC ACID [Concomitant]
     Indication: VITAMIN SUPPLEMENTATION
  9. LEFLUNOMIDE [Concomitant]
     Indication: RHEUMATOID ARTHRITIS

REACTIONS (15)
  - Wound [Recovered/Resolved]
  - Wound complication [Recovered/Resolved]
  - Rotator cuff syndrome [Recovered/Resolved]
  - Mobility decreased [Recovered/Resolved]
  - Rotator cuff syndrome [Recovered/Resolved]
  - Bunion [Recovered/Resolved]
  - Impaired healing [Recovered/Resolved]
  - Rotator cuff syndrome [Recovered/Resolved]
  - Wound infection [Recovered/Resolved]
  - Bunion [Unknown]
  - Intervertebral disc disorder [Unknown]
  - Nasopharyngitis [Recovered/Resolved]
  - Bronchitis [Recovered/Resolved]
  - Rhinorrhoea [Recovered/Resolved]
  - Joint dislocation [Not Recovered/Not Resolved]
